FAERS Safety Report 16682825 (Version 3)
Quarter: 2019Q3

REPORT INFORMATION
  Report Type: Report from Study
  Country: US (occurrence: US)
  Receive Date: 20190808
  Receipt Date: 20190912
  Transmission Date: 20191004
  Serious: Yes (Hospitalization, Other)
  Sender: FDA-Public Use
  Company Number: US-BAYER-2019-142592

PATIENT
  Age: 53 Year
  Sex: Female
  Weight: 105.67 kg

DRUGS (11)
  1. DYAZIDE [Concomitant]
     Active Substance: HYDROCHLOROTHIAZIDE\TRIAMTERENE
     Dosage: 37.5-25 MG
  2. VITAMIN D3 [Concomitant]
     Active Substance: CHOLECALCIFEROL
     Dosage: 10000 UNIT
  3. PROCHLORPERAZINE. [Concomitant]
     Active Substance: PROCHLORPERAZINE
     Dosage: 10 MG
  4. GLYCOLAX [Concomitant]
     Active Substance: POLYETHYLENE GLYCOL 3350
     Dosage: UNK
  5. STIVARGA [Suspect]
     Active Substance: REGORAFENIB
     Indication: RECTOSIGMOID CANCER
     Dosage: DAILY DOSE 120 MG
  6. HYDROCHLOROTHIAZIDE;TRIAMTERENE [Concomitant]
     Dosage: 37.5-25 MG
  7. TUMS [Concomitant]
     Active Substance: CALCIUM CARBONATE
     Dosage: UNK
  8. LEVOTHYROXINE SODIUM. [Concomitant]
     Active Substance: LEVOTHYROXINE SODIUM
     Dosage: 100 MCG
  9. STIVARGA [Suspect]
     Active Substance: REGORAFENIB
     Indication: RECTOSIGMOID CANCER
     Dosage: DAILY DOSE 80 MG
  10. GELCLAIR [ENOXOLONE;HYALURONATE SODIUM;POVIDONE] [Concomitant]
     Dosage: UNK
  11. STIVARGA [Suspect]
     Active Substance: REGORAFENIB
     Indication: RECTOSIGMOID CANCER
     Dosage: DAILY DOSE 160 MG

REACTIONS (11)
  - Biliary colic [Unknown]
  - Stomatitis [Unknown]
  - Back pain [Unknown]
  - Abdominal pain [Unknown]
  - Nausea [Unknown]
  - Off label use [None]
  - Hospitalisation [Unknown]
  - Diarrhoea [None]
  - Biliary tract disorder [Unknown]
  - Fatigue [Unknown]
  - Skin lesion [Unknown]

NARRATIVE: CASE EVENT DATE: 20190723
